FAERS Safety Report 16025709 (Version 1)
Quarter: 2019Q1

REPORT INFORMATION
  Report Type: Report from Study
  Country: DE (occurrence: DE)
  Receive Date: 20190302
  Receipt Date: 20190302
  Transmission Date: 20190418
  Serious: Yes (Congenital Anomaly, Other)
  Sender: FDA-Public Use
  Company Number: DE-ACCORD-108693

PATIENT
  Age: 1 Day
  Sex: Male
  Weight: .33 kg

DRUGS (7)
  1. LEVOTHYROXINE. [Suspect]
     Active Substance: LEVOTHYROXINE
     Indication: AUTOIMMUNE THYROIDITIS
     Dosage: PREGNANCY WEEK 0 TO 35 (+3)
     Route: 064
     Dates: start: 20130310, end: 20131113
  2. SITAGLIPTIN/SITAGLIPTIN PHOSPHATE [Suspect]
     Active Substance: SITAGLIPTIN PHOSPHATE
     Indication: TYPE 2 DIABETES MELLITUS
     Dosage: PREGNANCY WEEK 0 TO 6 (+4)
     Route: 064
     Dates: start: 20130310, end: 20130425
  3. METFORMIN [Suspect]
     Active Substance: METFORMIN HYDROCHLORIDE
     Indication: TYPE 2 DIABETES MELLITUS
     Dosage: PREGNANCY WEEK 0 TO 6 (+4)
     Route: 064
     Dates: start: 20130310, end: 20130425
  4. INSULIN [Concomitant]
     Active Substance: INSULIN NOS
     Dosage: EXPOSURE DURATION: 0-35+3 WEEKS
     Route: 064
  5. METHYLDOPA. [Suspect]
     Active Substance: METHYLDOPA
     Indication: HYPERTENSION
     Dosage: PREGNANCY WEEK 7(+4) TO 35 (+3)
     Route: 064
     Dates: start: 20130502, end: 20131113
  6. RAMIPRIL. [Suspect]
     Active Substance: RAMIPRIL
     Indication: HYPERTENSION
     Dosage: 10 MG, PREGNANCY WEEK 0 TO 6 (+4)
     Route: 064
     Dates: start: 20130310, end: 20130425
  7. METOPROLOL. [Suspect]
     Active Substance: METOPROLOL
     Indication: HYPERTENSION
     Dosage: PREGNANCY WEEK 7(+4) TO 35 (+3)
     Route: 064
     Dates: start: 20130502, end: 20131113

REACTIONS (4)
  - Atrial septal defect [Unknown]
  - Diabetic foetopathy [Recovered/Resolved]
  - Foetal exposure during pregnancy [Unknown]
  - Large for dates baby [Recovering/Resolving]

NARRATIVE: CASE EVENT DATE: 20131113
